FAERS Safety Report 23166120 (Version 1)
Quarter: 2023Q4

REPORT INFORMATION
  Report Type: Spontaneous
  Country: GB (occurrence: GB)
  Receive Date: 20231109
  Receipt Date: 20231109
  Transmission Date: 20240109
  Serious: Yes (Other)
  Sender: FDA-Public Use
  Company Number: None

PATIENT
  Age: 57 Year
  Sex: Female

DRUGS (1)
  1. CARBOPLATIN [Suspect]
     Active Substance: CARBOPLATIN
     Dosage: 560 MG
     Dates: start: 20231024, end: 20231024

REACTIONS (2)
  - Rash [Recovered/Resolved]
  - Extravasation [Unknown]

NARRATIVE: CASE EVENT DATE: 20231024
